FAERS Safety Report 6056567-3 (Version None)
Quarter: 2009Q1

REPORT INFORMATION
  Report Type: 
  Country: None (occurrence: None)
  Receive Date: 20090129
  Receipt Date: 20090120
  Transmission Date: 20090719
  Serious: Yes (Other)
  Sender: FDA-Public Use
  Company Number: DE-PURDUE-DEU_2008_0004908

PATIENT
  Age: 43 Year
  Sex: Female
  Weight: 86 kg

DRUGS (1)
  1. UNIPHYLLIN MINOR 200 MG, RETARDTABLETTEN [Suspect]
     Indication: ASTHMA
     Dosage: 200 MG, SINGLE
     Route: 048
     Dates: start: 20081128

REACTIONS (8)
  - ASTHENIA [None]
  - CARDIOVASCULAR INSUFFICIENCY [None]
  - GENERAL PHYSICAL HEALTH DETERIORATION [None]
  - HEADACHE [None]
  - NAUSEA [None]
  - SWELLING FACE [None]
  - TACHYCARDIA [None]
  - VOMITING [None]
